FAERS Safety Report 8373934-3 (Version None)
Quarter: 2012Q2

REPORT INFORMATION
  Report Type: 
  Country: None (occurrence: None)
  Receive Date: 20120521
  Receipt Date: 20120514
  Transmission Date: 20120825
  Serious: No
  Sender: FDA-Public Use
  Company Number: US-BAYER-2012-047262

PATIENT
  Sex: Female

DRUGS (1)
  1. MIRENA [Suspect]
     Dosage: 20 MCG/24HR, CONT
     Route: 015
     Dates: start: 20120203

REACTIONS (9)
  - MENSTRUAL DISORDER [None]
  - DYSURIA [None]
  - PALPITATIONS [None]
  - VAGINITIS BACTERIAL [None]
  - VULVOVAGINAL MYCOTIC INFECTION [None]
  - ANXIETY [None]
  - POLLAKIURIA [None]
  - BREAST TENDERNESS [None]
  - TINNITUS [None]
